FAERS Safety Report 4687875-6 (Version None)
Quarter: 2005Q2

REPORT INFORMATION
  Report Type: 
  Country: None (occurrence: None)
  Receive Date: 20050608
  Receipt Date: 20050608
  Transmission Date: 20051028
  Serious: Yes (Other)
  Sender: FDA-Public Use
  Company Number: None

PATIENT
  Sex: Male
  Weight: 84.8 kg

DRUGS (2)
  1. CISPLATIN [Suspect]
     Indication: NEOPLASM MALIGNANT
     Dosage: 100 MG/M2 ON DAYS 1, 22, + 43
     Dates: start: 20050425
  2. RADIATION [Suspect]
     Indication: NEOPLASM MALIGNANT
     Dosage: 70 GY/35FX FOR 7 WKS
     Dates: start: 20050425

REACTIONS (11)
  - BODY TEMPERATURE INCREASED [None]
  - CANDIDIASIS [None]
  - DEHYDRATION [None]
  - DYSPHAGIA [None]
  - MUCOSAL INFLAMMATION [None]
  - NEUTROPHIL COUNT DECREASED [None]
  - ORAL PAIN [None]
  - PAIN [None]
  - PYREXIA [None]
  - STAPHYLOCOCCAL INFECTION [None]
  - WHITE BLOOD CELL COUNT DECREASED [None]
